FAERS Safety Report 18870012 (Version 2)
Quarter: 2021Q2

REPORT INFORMATION
  Report Type: Spontaneous
  Country: US (occurrence: US)
  Receive Date: 20210210
  Receipt Date: 20210402
  Transmission Date: 20210717
  Serious: Yes (Other)
  Sender: FDA-Public Use
  Company Number: US-ABBVIE-21K-163-3757744-00

PATIENT
  Age: 47 Year
  Sex: Female
  Weight: 114.76 kg

DRUGS (4)
  1. PFIZER?BIONTECH COVID?19 VACCINE [Suspect]
     Active Substance: TOZINAMERAN
     Indication: COVID-19 IMMUNISATION
     Dosage: FIRST DOSE, PFIZER
     Route: 030
     Dates: start: 20210123, end: 20210123
  2. HUMIRA [Suspect]
     Active Substance: ADALIMUMAB
     Indication: IRIDOCYCLITIS
     Route: 058
  3. HUMIRA [Suspect]
     Active Substance: ADALIMUMAB
     Indication: UVEITIS
  4. METHOTREXATE. [Concomitant]
     Active Substance: METHOTREXATE
     Indication: IRIDOCYCLITIS
     Dosage: DRAWS UP 0.08CC ON THE TINY SYRINGE

REACTIONS (12)
  - Pruritus [Recovered/Resolved]
  - Hypothyroidism [Not Recovered/Not Resolved]
  - Sneezing [Unknown]
  - Ear pruritus [Recovered/Resolved]
  - Vaccination site urticaria [Recovered/Resolved]
  - Vaccination site pruritus [Recovered/Resolved]
  - Pruritus [Recovering/Resolving]
  - Gastrooesophageal reflux disease [Not Recovered/Not Resolved]
  - Meniscus injury [Recovering/Resolving]
  - Sneezing [Recovered/Resolved]
  - Pruritus [Recovered/Resolved]
  - Hypersensitivity [Unknown]

NARRATIVE: CASE EVENT DATE: 2008
